FAERS Safety Report 19205160 (Version 2)
Quarter: 2021Q2

REPORT INFORMATION
  Report Type: Spontaneous
  Country: US (occurrence: US)
  Receive Date: 20210503
  Receipt Date: 20210526
  Transmission Date: 20210717
  Serious: Yes (Other)
  Sender: FDA-Public Use
  Company Number: US-ASTELLAS-2021US015594

PATIENT
  Age: 54 Year
  Sex: Female

DRUGS (8)
  1. RETIN?A [Concomitant]
     Active Substance: TRETINOIN
     Indication: PRODUCT USED FOR UNKNOWN INDICATION
     Dosage: UNK UNK, ONCE DAILY
     Route: 065
  2. ALPRAZOLAM. [Concomitant]
     Active Substance: ALPRAZOLAM
     Indication: PRODUCT USED FOR UNKNOWN INDICATION
     Dosage: 0.5 MG, AS NEEDED (PRN)
     Route: 065
  3. LEXISCAN [Suspect]
     Active Substance: REGADENOSON
     Indication: CHEST PAIN
     Dosage: 0.4 MG, OTHER (10?15 SECONDS)
     Route: 042
     Dates: start: 20210426, end: 20210426
  4. TIROSINT [Concomitant]
     Active Substance: LEVOTHYROXINE SODIUM
     Indication: PRODUCT USED FOR UNKNOWN INDICATION
     Route: 065
  5. LEXISCAN [Suspect]
     Active Substance: REGADENOSON
     Indication: CHEST PAIN
     Dosage: 0.4 MG, OTHER (10?15 SECONDS)
     Route: 042
     Dates: start: 20210426, end: 20210426
  6. LEXISCAN [Suspect]
     Active Substance: REGADENOSON
     Indication: CHEST PAIN
     Dosage: 0.4 MG, OTHER (10?15 SECONDS)
     Route: 042
     Dates: start: 20210426, end: 20210426
  7. PROGESTERONE. [Concomitant]
     Active Substance: PROGESTERONE
     Indication: PRODUCT USED FOR UNKNOWN INDICATION
     Route: 065
  8. LEXISCAN [Suspect]
     Active Substance: REGADENOSON
     Indication: CHEST PAIN
     Dosage: 0.4 MG, OTHER (10?15 SECONDS)
     Route: 042
     Dates: start: 20210426, end: 20210426

REACTIONS (12)
  - Hyperhidrosis [Unknown]
  - Dizziness [Unknown]
  - Flushing [Unknown]
  - Incorrect product administration duration [Unknown]
  - Vomiting [Recovered/Resolved]
  - Pain in extremity [Unknown]
  - Product use in unapproved indication [Unknown]
  - Unresponsive to stimuli [Recovered/Resolved]
  - Heart rate decreased [Recovered/Resolved]
  - Feeding disorder [Unknown]
  - Abdominal pain [Unknown]
  - Nausea [Unknown]

NARRATIVE: CASE EVENT DATE: 20210426
